FAERS Safety Report 4578900-1 (Version None)
Quarter: 2005Q1

REPORT INFORMATION
  Report Type: 
  Country: None (occurrence: None)
  Receive Date: 20050211
  Receipt Date: 20040915
  Transmission Date: 20050727
  Serious: Yes (Disabling)
  Sender: FDA-Public Use
  Company Number: TR-ABBOTT-04P-161-0273561-00

PATIENT
  Age: 30 Year
  Sex: Female
  Weight: 110 kg

DRUGS (3)
  1. DEPAKENE [Suspect]
     Indication: EPILEPSY
     Route: 048
     Dates: start: 19980101, end: 19980101
  2. DEPAKENE [Suspect]
     Route: 048
     Dates: start: 19980101, end: 20000101
  3. DEPAKENE [Suspect]
     Route: 048
     Dates: start: 20000101

REACTIONS (13)
  - ANGINA PECTORIS [None]
  - CARDIAC DISORDER [None]
  - CHEST PAIN [None]
  - DEPRESSION [None]
  - FATIGUE [None]
  - HIRSUTISM [None]
  - HYPERTENSION [None]
  - PALPITATIONS [None]
  - POLYCYSTIC OVARIES [None]
  - SOMNOLENCE [None]
  - SPINAL DISORDER [None]
  - UTERINE CYST [None]
  - WEIGHT INCREASED [None]
